FAERS Safety Report 14941051 (Version 1)
Quarter: 2018Q2

REPORT INFORMATION
  Report Type: Spontaneous
  Country: JP (occurrence: JP)
  Receive Date: 20180525
  Receipt Date: 20180525
  Transmission Date: 20180711
  Serious: Yes (Hospitalization)
  Sender: FDA-Public Use
  Company Number: JP-OSMOTICA_PHARMACEUTICAL_US_LLC-POI0573201800151

PATIENT
  Age: 48 Year
  Sex: Female
  Weight: 47 kg

DRUGS (10)
  1. TERNELIN [Suspect]
     Active Substance: TIZANIDINE
     Indication: MUSCULOSKELETAL PAIN
     Dates: end: 2018
  2. LEXAPRO [Suspect]
     Active Substance: ESCITALOPRAM OXALATE
     Indication: DEPRESSION
     Dates: start: 20170905, end: 20180129
  3. SOLANAX [Suspect]
     Active Substance: ALPRAZOLAM
     Indication: ANXIOLYTIC THERAPY
     Dates: start: 20171219, end: 20180129
  4. CALCITRIOL. [Suspect]
     Active Substance: CALCITRIOL
     Indication: OSTEOPOROSIS
     Dates: start: 20170901, end: 20180130
  5. DIVIGEL [Suspect]
     Active Substance: ESTRADIOL
     Indication: MENOPAUSAL SYMPTOMS
     Route: 062
     Dates: start: 201606, end: 20180130
  6. HOCHUEKKITO EXTRACT GRANULES FOR ETHICAL USE [Suspect]
     Active Substance: HERBALS
  7. BROTIZOLAM [Suspect]
     Active Substance: BROTIZOLAM
     Dates: start: 20171219, end: 20180129
  8. KEISKIKARYUKOTSUBOREITO EXTRACT GRANULES FOR ETHICAL USE [Suspect]
     Active Substance: HERBALS
  9. TOKISHIGYAKUKAGOSHUYUSHOKYOTO EXTRACT GRANULES FOR ETHICAL USE [Suspect]
     Active Substance: HERBALS
  10. LOXOPROFEN NA [Suspect]
     Active Substance: LOXOPROFEN SODIUM
     Indication: MUSCULOSKELETAL PAIN
     Dates: end: 2018

REACTIONS (1)
  - Toxic epidermal necrolysis [Recovering/Resolving]

NARRATIVE: CASE EVENT DATE: 20180128
